FAERS Safety Report 21965976 (Version 1)
Quarter: 2023Q1

REPORT INFORMATION
  Report Type: Spontaneous
  Country: US (occurrence: US)
  Receive Date: 20230208
  Receipt Date: 20230208
  Transmission Date: 20230418
  Serious: No
  Sender: FDA-Public Use
  Company Number: US-GLAXOSMITHKLINE-USCH2023005751

PATIENT

DRUGS (1)
  1. FLUTICASONE [Suspect]
     Active Substance: FLUTICASONE
     Indication: COVID-19
     Dosage: UNK

REACTIONS (2)
  - Product use in unapproved indication [Unknown]
  - Drug effective for unapproved indication [Unknown]
